FAERS Safety Report 7075320-5 (Version None)
Quarter: 2010Q4

REPORT INFORMATION
  Report Type: 
  Country: None (occurrence: None)
  Receive Date: 20101030
  Receipt Date: 20100901
  Transmission Date: 20110411
  Serious: No
  Sender: FDA-Public Use
  Company Number: US-WYE-H17324410

PATIENT
  Sex: Female

DRUGS (3)
  1. PRISTIQ [Suspect]
     Indication: DEPRESSION
     Dates: start: 20081112
  2. L-METHYLFOLATE [Concomitant]
  3. PROVIGIL [Concomitant]

REACTIONS (6)
  - APHASIA [None]
  - CONSTIPATION [None]
  - IRRITABILITY [None]
  - NAUSEA [None]
  - NERVOUSNESS [None]
  - POOR QUALITY SLEEP [None]
